FAERS Safety Report 24195795 (Version 1)
Quarter: 2024Q3

REPORT INFORMATION
  Report Type: Spontaneous
  Country: IT (occurrence: IT)
  Receive Date: 20240809
  Receipt Date: 20240809
  Transmission Date: 20241017
  Serious: Yes (Other)
  Sender: MYLAN
  Company Number: IT-MYLANLABS-2024M1073082

PATIENT
  Age: 12 Year
  Sex: Male

DRUGS (3)
  1. ARIPIPRAZOLE [Suspect]
     Active Substance: ARIPIPRAZOLE
     Indication: Psychomotor hyperactivity
     Dosage: 2.5 MILLIGRAM, QD
     Route: 065
     Dates: start: 20240727
  2. ARIPIPRAZOLE [Suspect]
     Active Substance: ARIPIPRAZOLE
     Indication: Aggression
     Dosage: 5 MILLIGRAM, QD
     Route: 065
     Dates: start: 20240730
  3. PERGIDAL [Concomitant]
     Indication: Constipation
     Dosage: 4 DOSAGE FORM, QD ( 4 SACHETS OF 3.75G/DAY)
     Route: 048
     Dates: start: 20240724

REACTIONS (13)
  - Tongue paralysis [Recovered/Resolved]
  - Asthenia [Recovered/Resolved]
  - Tongue discomfort [Recovered/Resolved]
  - Dysarthria [Recovered/Resolved]
  - Tongue movement disturbance [Recovered/Resolved]
  - Suffocation feeling [Recovered/Resolved]
  - Obstructive airways disorder [Recovered/Resolved]
  - Rash erythematous [Recovered/Resolved]
  - Tongue thrust [Unknown]
  - Adverse event [Unknown]
  - Headache [Recovered/Resolved]
  - Swollen tongue [Recovered/Resolved]
  - Off label use [Unknown]

NARRATIVE: CASE EVENT DATE: 20240730
